FAERS Safety Report 6491453-6 (Version None)
Quarter: 2009Q4

REPORT INFORMATION
  Report Type: 
  Country: None (occurrence: None)
  Receive Date: 20091211
  Receipt Date: 20091203
  Transmission Date: 20100525
  Serious: Yes (Hospitalization)
  Sender: FDA-Public Use
  Company Number: CHPA2009JP23048

PATIENT
  Age: 80 Year
  Sex: Female

DRUGS (3)
  1. NICOTINELL GUM (NCH) [Suspect]
     Indication: SMOKING CESSATION THERAPY
     Dosage: 20 DF IN TOTAL
     Dates: start: 20091101, end: 20091101
  2. NICOTINELL GUM (NCH) [Suspect]
     Dosage: 1 DF, BID
     Dates: start: 20091112, end: 20091113
  3. ANTIBIOTICS [Concomitant]

REACTIONS (2)
  - DYSARTHRIA [None]
  - FACE OEDEMA [None]
